FAERS Safety Report 4645336-4 (Version None)
Quarter: 2005Q2

REPORT INFORMATION
  Report Type: 
  Country: None (occurrence: None)
  Receive Date: 20050331
  Receipt Date: 20041222
  Transmission Date: 20051028
  Serious: Yes (Hospitalization)
  Sender: FDA-Public Use
  Company Number: 04P-163-0284852-00

PATIENT
  Age: 63 Year
  Sex: Female
  Weight: 51 kg

DRUGS (6)
  1. HUMIRA [Suspect]
     Indication: RHEUMATOID ARTHRITIS
     Dosage: 40 MG, 1 IN 2 WK, SUBCUTANEOUS
     Route: 058
     Dates: start: 20030423, end: 20041124
  2. METHOTREXATE SODIUM [Concomitant]
  3. ASPIRIN [Concomitant]
  4. ALENDRONATE SODIUM [Concomitant]
  5. HYDROCHLOROTHIAZIDE [Concomitant]
  6. PARACETAMOL [Concomitant]

REACTIONS (6)
  - AORTIC VALVE INCOMPETENCE [None]
  - BACK PAIN [None]
  - BACTERAEMIA [None]
  - LYMPHOMA [None]
  - NEPHROLITHIASIS [None]
  - PYELONEPHRITIS [None]
